FAERS Safety Report 8483888-7 (Version None)
Quarter: 2012Q3

REPORT INFORMATION
  Report Type: 
  Country: None (occurrence: None)
  Receive Date: 20120703
  Receipt Date: 20120620
  Transmission Date: 20120928
  Serious: Yes (Other)
  Sender: FDA-Public Use
  Company Number: US-PAR PHARMACEUTICAL, INC-2012SCPR004458

PATIENT

DRUGS (5)
  1. BUPROPION HYDROBROMIDE [Suspect]
     Indication: DEPRESSION
     Dosage: 1 TABLET ONCE A DAY
     Route: 048
     Dates: start: 20120423, end: 20120501
  2. BUPROPION HYDROBROMIDE [Suspect]
     Dosage: 1 TABLET TWICE A DAY
     Route: 048
  3. LORAZEPAM [Concomitant]
     Indication: PRODUCT USED FOR UNKNOWN INDICATION
     Dosage: UNK, UNKNOWN
     Route: 065
  4. GABAPENTIN [Concomitant]
     Indication: PRODUCT USED FOR UNKNOWN INDICATION
     Dosage: UNK, UNKNOWN
     Route: 065
  5. OXYCODONE HCL [Concomitant]
     Indication: PRODUCT USED FOR UNKNOWN INDICATION
     Dosage: UNK, UNKNOWN
     Route: 065

REACTIONS (9)
  - DYSPHONIA [None]
  - HEADACHE [None]
  - TREATMENT NONCOMPLIANCE [None]
  - DIZZINESS [None]
  - PYREXIA [None]
  - CHILLS [None]
  - DYSPNOEA [None]
  - CHEST DISCOMFORT [None]
  - PALPITATIONS [None]
